FAERS Safety Report 22517634 (Version 1)
Quarter: 2023Q2

REPORT INFORMATION
  Report Type: Spontaneous
  Country: CA (occurrence: CA)
  Receive Date: 20230604
  Receipt Date: 20230604
  Transmission Date: 20230722
  Serious: Yes (Hospitalization)
  Sender: FDA-Public Use
  Company Number: CA-AUROBINDO-AUR-APL-2023-039517

PATIENT
  Age: 67 Year
  Sex: Male
  Weight: 40 kg

DRUGS (10)
  1. CIPROFLOXACIN [Suspect]
     Active Substance: CIPROFLOXACIN
     Indication: Pneumonia
     Dosage: 250 MILLIGRAM, TWO TIMES A DAY
     Route: 048
  2. CEFTRIAXONE [Suspect]
     Active Substance: CEFTRIAXONE
     Indication: Pneumonia
     Dosage: 1 GRAM, ONCE A DAY
     Route: 042
  3. SULFATRIM [Suspect]
     Active Substance: SULFAMETHOXAZOLE\TRIMETHOPRIM
     Indication: Klebsiella bacteraemia
     Dosage: 800 MILLIGRAM, TWO TIMES A DAY
     Route: 048
  4. FERROUS FUMARATE [Concomitant]
     Active Substance: FERROUS FUMARATE
     Indication: Product used for unknown indication
     Dosage: UNK
     Route: 065
  5. GABAPENTIN [Concomitant]
     Active Substance: GABAPENTIN
     Indication: Product used for unknown indication
     Dosage: UNK
     Route: 065
  6. PANTOPRAZOLE [Concomitant]
     Active Substance: PANTOPRAZOLE
     Indication: Product used for unknown indication
     Dosage: UNK
     Route: 065
  7. PRAMIPEXOLE [Concomitant]
     Active Substance: PRAMIPEXOLE
     Indication: Product used for unknown indication
     Dosage: UNK
     Route: 065
  8. SUCRALFATE [Concomitant]
     Active Substance: SUCRALFATE
     Indication: Product used for unknown indication
     Dosage: UNK
     Route: 065
  9. TAMSULOSIN [Concomitant]
     Active Substance: TAMSULOSIN
     Indication: Product used for unknown indication
     Dosage: UNK
     Route: 065
  10. VITAMIN D3 [Suspect]
     Active Substance: CHOLECALCIFEROL
     Indication: Product used for unknown indication
     Dosage: UNK
     Route: 065

REACTIONS (1)
  - Clostridium test positive [Unknown]
